FAERS Safety Report 6390730-7 (Version None)
Quarter: 2009Q4

REPORT INFORMATION
  Report Type: 
  Country: None (occurrence: None)
  Receive Date: 20091006
  Receipt Date: 20090928
  Transmission Date: 20100525
  Serious: Yes (Other)
  Sender: FDA-Public Use
  Company Number: PHHO2009US11910

PATIENT
  Sex: Female
  Weight: 85.5 kg

DRUGS (5)
  1. ZOLEDRONATE T29581+SOLINF [Suspect]
     Indication: BREAST CANCER
     Dosage: 4 MG, UNK
     Route: 042
     Dates: start: 20090702, end: 20090727
  2. VITAMIN D [Concomitant]
  3. CALCIUM [Concomitant]
  4. CHEMOTHERAPEUTICS,OTHER [Concomitant]
     Dosage: UNK
     Dates: start: 20090501, end: 20090701
  5. CHEMOTHERAPEUTICS,OTHER [Concomitant]
     Dosage: UNK
     Dates: start: 20090701

REACTIONS (7)
  - BONE LESION [None]
  - DYSGEUSIA [None]
  - EAR PAIN [None]
  - ERYTHEMA [None]
  - HEADACHE [None]
  - OSTEONECROSIS [None]
  - PAIN IN JAW [None]
